FAERS Safety Report 10084892 (Version 1)
Quarter: 2014Q2

REPORT INFORMATION
  Report Type: Spontaneous
  Country: US (occurrence: None)
  Receive Date: 20140404
  Receipt Date: 20140404
  Transmission Date: 20141212
  Serious: Yes (Hospitalization)
  Sender: FDA-Public Use
  Company Number: 1333916

PATIENT
  Age: 43 Year
  Sex: Female

DRUGS (4)
  1. PERJETA [Suspect]
     Indication: HER-2 POSITIVE BREAST CANCER
  2. HERCEPTIN [Suspect]
     Indication: HER-2 POSITIVE BREAST CANCER
  3. DOCETAXEL [Concomitant]
  4. CARBOPLATIN [Concomitant]

REACTIONS (2)
  - Vomiting [None]
  - Nausea [None]
